FAERS Safety Report 4741619-8 (Version None)
Quarter: 2005Q3

REPORT INFORMATION
  Report Type: 
  Country: None (occurrence: None)
  Receive Date: 20050801
  Receipt Date: 20050625
  Transmission Date: 20060218
  Serious: No
  Sender: FDA-Public Use
  Company Number: 2005PV000136

PATIENT
  Age: 40 Year
  Sex: Male
  Weight: 147.419 kg

DRUGS (4)
  1. BYETTA [Suspect]
     Indication: DIABETES MELLITUS NON-INSULIN-DEPENDENT
     Dosage: 5 UG; BID; SC
     Route: 058
     Dates: start: 20050623
  2. GLIPIZIDE [Concomitant]
  3. ACTOS [Concomitant]
  4. ONE A DAY FOR MEN [Concomitant]

REACTIONS (1)
  - MOTION SICKNESS [None]
